APPROVED DRUG PRODUCT: JADENU
Active Ingredient: DEFERASIROX
Strength: 360MG
Dosage Form/Route: TABLET;ORAL
Application: N206910 | Product #003 | TE Code: AB
Applicant: NOVARTIS PHARMACEUTICALS CORP
Approved: Mar 30, 2015 | RLD: Yes | RS: Yes | Type: RX

PATENTS:
Patent 9283209 | Expires: Nov 21, 2034